FAERS Safety Report 8182598-3 (Version None)
Quarter: 2012Q1

REPORT INFORMATION
  Report Type: 
  Country: None (occurrence: None)
  Receive Date: 20120305
  Receipt Date: 20120224
  Transmission Date: 20120608
  Serious: Yes (Hospitalization, Other)
  Sender: FDA-Public Use
  Company Number: IT-SHIRE-ALL1-2012-01161

PATIENT
  Sex: Male

DRUGS (3)
  1. AZATHIOPRINE [Concomitant]
     Indication: COLITIS ULCERATIVE
     Dosage: UNK, UNKNOWN
     Route: 065
  2. HAEMOPHILIC FACTOR [Concomitant]
     Indication: HAEMOPHILIA
     Route: 065
  3. MESALAMINE [Suspect]
     Indication: COLITIS ULCERATIVE
     Dosage: 2400 MG,( TWO 1200 MG TABLETS) 1X/DAY:QD
     Route: 048
     Dates: start: 20110301, end: 20110901

REACTIONS (1)
  - INTESTINAL HAEMORRHAGE [None]
